FAERS Safety Report 10163694 (Version 1)
Quarter: 2014Q2

REPORT INFORMATION
  Report Type: Report from Study
  Country: BE (occurrence: BE)
  Receive Date: 20140509
  Receipt Date: 20140509
  Transmission Date: 20141212
  Serious: Yes (Death)
  Sender: FDA-Public Use
  Company Number: BE-BAXTER-2014BAX022202

PATIENT
  Sex: 0

DRUGS (2)
  1. BREVIBLOC [Suspect]
     Indication: SEPTIC SHOCK
     Route: 042
  2. BREVIBLOC [Suspect]
     Indication: OFF LABEL USE

REACTIONS (1)
  - Death [Fatal]
